FAERS Safety Report 10228063 (Version 1)
Quarter: 2014Q2

REPORT INFORMATION
  Report Type: Spontaneous
  Country: IT (occurrence: IT)
  Receive Date: 20140610
  Receipt Date: 20140610
  Transmission Date: 20141212
  Serious: Yes (Other)
  Sender: FDA-Public Use
  Company Number: IT-ACTAVIS-2014-11875

PATIENT
  Age: 44 Year
  Sex: Female

DRUGS (1)
  1. TRAMADOL (UNKNOWN) [Suspect]
     Indication: PRODUCT USED FOR UNKNOWN INDICATION
     Dosage: 25 GTT DROP(S), TOTAL
     Route: 048
     Dates: start: 20140519, end: 20140519

REACTIONS (2)
  - Chest discomfort [Recovering/Resolving]
  - Headache [Recovering/Resolving]
